FAERS Safety Report 15183190 (Version 8)
Quarter: 2018Q4

REPORT INFORMATION
  Report Type: Report from Study
  Country: BE (occurrence: BE)
  Receive Date: 20180723
  Receipt Date: 20181218
  Transmission Date: 20190204
  Serious: Yes (Other)
  Sender: FDA-Public Use
  Company Number: BE-BAYER-2017-180792

PATIENT
  Age: 66 Year
  Sex: Male

DRUGS (29)
  1. PANTOPRAZOLE [Concomitant]
     Active Substance: PANTOPRAZOLE
     Dosage: UNK
  2. INDOCOLLYRE [Concomitant]
     Active Substance: INDOMETHACIN
  3. TRIPLIXAM [Concomitant]
     Active Substance: AMLODIPINE BESYLATE\INDAPAMIDE\PERINDOPRIL ARGININE
     Dosage: UNK
     Dates: start: 20180215
  4. NEXAVAR [Suspect]
     Active Substance: SORAFENIB
     Indication: HEPATOCELLULAR CARCINOMA
     Dosage: 00DAILY DOSE 800 MG
     Dates: start: 2017, end: 20170708
  5. LYRICA [Concomitant]
     Active Substance: PREGABALIN
     Dosage: 300 MG, QD
  6. LYRICA [Concomitant]
     Active Substance: PREGABALIN
     Dosage: UNK
  7. NOVORAPID [Concomitant]
     Active Substance: INSULIN ASPART
     Indication: DIABETES MELLITUS
     Dosage: UNK
  8. NEXAVAR [Suspect]
     Active Substance: SORAFENIB
     Indication: HEPATOCELLULAR CARCINOMA
     Dosage: DAILY DOSE 400 MG
     Route: 048
     Dates: start: 20170912, end: 2017
  9. ASAFLOW [Concomitant]
     Active Substance: ASPIRIN
     Dosage: UNK
  10. PERINDOPRIL ARGININE [Concomitant]
     Active Substance: PERINDOPRIL ARGININE
  11. BEFACT [CYANOCOBALAMIN;PYRIDOXINE HYDROCHLORIDE;RIBOFLAVIN;THIAMINE MO [Concomitant]
  12. NEXAVAR [Suspect]
     Active Substance: SORAFENIB
     Indication: HEPATOCELLULAR CARCINOMA
     Dosage: DAILY DOSE 600 MG
     Dates: start: 20171219
  13. NEXAVAR [Suspect]
     Active Substance: SORAFENIB
     Indication: HEPATOCELLULAR CARCINOMA
     Dosage: DAILY DOSE 800 MG
     Dates: start: 20180924
  14. TOTALIP [Concomitant]
     Active Substance: ATORVASTATIN
     Dosage: 40 MG, UNK
  15. MAXITROL [Concomitant]
     Active Substance: DEXAMETHASONE\NEOMYCIN SULFATE\POLYMYXIN B SULFATE
  16. BEFACT [CYANOCOBALAMIN;PYRIDOXINE HYDROCHLORIDE;RIBOFLAVIN;THIAMINE MO [Concomitant]
  17. RIBOFLAVIN [Concomitant]
     Active Substance: RIBOFLAVIN
     Indication: MUSCLE SPASMS
  18. TRIPLIXAM [Concomitant]
     Active Substance: AMLODIPINE BESYLATE\INDAPAMIDE\PERINDOPRIL ARGININE
  19. WINTON [Concomitant]
  20. NEXAVAR [Suspect]
     Active Substance: SORAFENIB
     Indication: HEPATOCELLULAR CARCINOMA
     Dosage: DAILY DOSE 400 MG
     Route: 048
     Dates: start: 20171013, end: 2017
  21. TOTALIP [Concomitant]
     Active Substance: ATORVASTATIN
     Dosage: UNK
  22. INDOCOLLYRE [Concomitant]
     Active Substance: INDOMETHACIN
  23. GLUCOPHAGE [Concomitant]
     Active Substance: METFORMIN HYDROCHLORIDE
     Indication: DIABETES MELLITUS
     Dosage: 850 MG, UNK
  24. ASAFLOW [Concomitant]
     Active Substance: ASPIRIN
     Dosage: 160 MG, UNK
  25. MAXITROL [Concomitant]
     Active Substance: DEXAMETHASONE\NEOMYCIN SULFATE\POLYMYXIN B SULFATE
  26. PERINDOPRIL ARGININE [Concomitant]
     Active Substance: PERINDOPRIL ARGININE
     Dates: start: 20180215
  27. NOVOMIX [Concomitant]
     Active Substance: INSULIN ASPART
     Indication: DIABETES MELLITUS
     Dosage: UNK
  28. RIBOFLAVIN [Concomitant]
     Active Substance: RIBOFLAVIN
     Indication: MUSCLE SPASMS
     Dosage: UNK
     Dates: start: 201805
  29. WINTON [Concomitant]

REACTIONS (45)
  - Skin reaction [Recovering/Resolving]
  - Diarrhoea [Unknown]
  - Diarrhoea [None]
  - Diarrhoea [Recovered/Resolved]
  - Skin exfoliation [Not Recovered/Not Resolved]
  - Gastrointestinal pain [Not Recovered/Not Resolved]
  - Muscle spasms [Not Recovered/Not Resolved]
  - Hypoglycaemia [None]
  - Solar lentigo [Not Recovered/Not Resolved]
  - Head discomfort [None]
  - Palmar-plantar erythrodysaesthesia syndrome [None]
  - Palmar-plantar erythrodysaesthesia syndrome [Recovering/Resolving]
  - Limb injury [Recovered/Resolved]
  - Fatigue [Not Recovered/Not Resolved]
  - Dysphonia [None]
  - Decreased appetite [None]
  - Hypertension [Recovered/Resolved]
  - Muscle spasms [None]
  - Cyst [Not Recovered/Not Resolved]
  - Weight increased [None]
  - Muscle spasms [Unknown]
  - Dry skin [Unknown]
  - Gastrointestinal pain [None]
  - Hypertension [None]
  - Dry skin [None]
  - Abdominal pain [Not Recovered/Not Resolved]
  - Gastric disorder [None]
  - Dizziness [Not Recovered/Not Resolved]
  - Cough [Recovering/Resolving]
  - Weight decreased [Not Recovered/Not Resolved]
  - Pruritus [None]
  - Diarrhoea [None]
  - Hypertension [Unknown]
  - Hypertension [Recovered/Resolved]
  - Abdominal pain [Unknown]
  - Tumour necrosis [None]
  - Fatigue [Recovering/Resolving]
  - Alopecia [Not Recovered/Not Resolved]
  - Dry skin [Not Recovered/Not Resolved]
  - Diarrhoea [Recovering/Resolving]
  - Palmar-plantar erythrodysaesthesia syndrome [None]
  - Hair texture abnormal [Not Recovered/Not Resolved]
  - Poor quality sleep [Not Recovered/Not Resolved]
  - Hypertension [None]
  - Abdominal pain upper [None]

NARRATIVE: CASE EVENT DATE: 201709
